FAERS Safety Report 9914408 (Version 1)
Quarter: 2014Q1

REPORT INFORMATION
  Report Type: Spontaneous
  Country: US (occurrence: US)
  Receive Date: 20140220
  Receipt Date: 20140220
  Transmission Date: 20141002
  Serious: Yes (Other)
  Sender: FDA-Public Use
  Company Number: US-BMSGILMSD-2011-0045796

PATIENT
  Age: 25 Year
  Sex: Male

DRUGS (1)
  1. ATRIPLA [Suspect]
     Indication: PRODUCT USED FOR UNKNOWN INDICATION
     Dosage: UNK
     Route: 065
     Dates: end: 201110

REACTIONS (3)
  - Erythema multiforme [Recovered/Resolved]
  - Lip blister [Recovered/Resolved]
  - Rash [Recovered/Resolved]
